FAERS Safety Report 8446505-8 (Version None)
Quarter: 2012Q2

REPORT INFORMATION
  Report Type: 
  Country: None (occurrence: None)
  Receive Date: 20120618
  Receipt Date: 20120611
  Transmission Date: 20120825
  Serious: Yes (Other)
  Sender: FDA-Public Use
  Company Number: US-FRI-1000031242

PATIENT
  Sex: Male

DRUGS (12)
  1. TRAZODONE HCL [Interacting]
     Indication: DEPRESSION
     Dates: start: 20100901, end: 20100901
  2. ASPIRIN [Interacting]
     Indication: ANTIPLATELET THERAPY
     Dates: start: 20100901, end: 20100901
  3. LAMICTAL [Interacting]
     Indication: DEMENTIA WITH LEWY BODIES
     Dates: start: 20100901, end: 20100901
  4. ATIVAN [Interacting]
     Dates: start: 20100901, end: 20100901
  5. NEURONTIN [Interacting]
     Indication: DEMENTIA WITH LEWY BODIES
     Dates: start: 20100907, end: 20100901
  6. NAMENDA [Suspect]
     Indication: DEMENTIA WITH LEWY BODIES
     Dates: start: 20100901, end: 20100901
  7. REMERON [Interacting]
     Indication: DEPRESSION
     Dates: start: 20100901, end: 20100901
  8. EXELON [Interacting]
     Indication: DEMENTIA WITH LEWY BODIES
     Dates: start: 20100901, end: 20100901
  9. ACETAMINOPHEN [Concomitant]
     Indication: PAIN
  10. TEMAZEPAM [Interacting]
     Indication: SLEEP DISORDER
     Dates: start: 20100901, end: 20100901
  11. VISTARIL [Interacting]
     Dates: start: 20100901, end: 20100901
  12. UNSPECIFIED ANTIHISTAMINICS [Interacting]
     Dates: start: 20100901, end: 20100901

REACTIONS (4)
  - OFF LABEL USE [None]
  - UNEVALUABLE EVENT [None]
  - THINKING ABNORMAL [None]
  - DRUG INTERACTION [None]
